FAERS Safety Report 5075654-X (Version None)
Quarter: 2006Q3

REPORT INFORMATION
  Report Type: 
  Country: None (occurrence: None)
  Receive Date: 20060809
  Receipt Date: 20060127
  Transmission Date: 20061208
  Serious: No
  Sender: FDA-Public Use
  Company Number: US-AMGEN-US166727

PATIENT
  Sex: Female

DRUGS (15)
  1. EPOGEN [Suspect]
     Indication: DIALYSIS
     Route: 042
  2. ASPIRIN [Concomitant]
     Route: 048
  3. BUMEX [Concomitant]
  4. CALCIUM CARBONATE [Concomitant]
  5. GLUCOSAMINE [Concomitant]
  6. HYDRALAZINE HYDROCHLORIDE [Concomitant]
  7. KLONOPIN [Concomitant]
  8. LABETALOL HCL [Concomitant]
  9. LANTUS [Concomitant]
  10. LIPITOR [Concomitant]
  11. NEPHRO-VITE [Concomitant]
  12. NOVALOG INSULIN [Concomitant]
  13. PRILOSEC [Concomitant]
  14. PROZAC [Concomitant]
  15. SYNTHROID [Concomitant]

REACTIONS (1)
  - THERAPEUTIC RESPONSE DECREASED [None]
